FAERS Safety Report 23975481 (Version 2)
Quarter: 2024Q3

REPORT INFORMATION
  Report Type: Spontaneous
  Country: ES (occurrence: None)
  Receive Date: 20240614
  Receipt Date: 20240704
  Transmission Date: 20241016
  Serious: Yes (Hospitalization, Other)
  Sender: ASTRAZENECA
  Company Number: 2024A137230

PATIENT
  Age: 70 Year
  Sex: Female

DRUGS (20)
  1. OMEPRAZOLE [Suspect]
     Active Substance: OMEPRAZOLE
     Indication: Gastritis
     Dosage: EVERY 12 HOURS 1-0-1
     Route: 048
     Dates: start: 20231204, end: 20240213
  2. PROLIA [Suspect]
     Active Substance: DENOSUMAB
     Indication: Osteoporosis
     Dosage: 60MG INJECTABLE SOLUTION IN PRE-FILLEDSYRINGE, 1 PRE-FILLED SYRINGE 1ML 60MG EVERY 6 MONTHS
     Route: 058
     Dates: start: 20230612, end: 20231130
  3. SITAGLIPTIN [Concomitant]
     Active Substance: SITAGLIPTIN
     Dosage: 100 MG (0-1-0)
  4. DAPAGLIFLOZIN [Concomitant]
     Active Substance: DAPAGLIFLOZIN
     Dosage: 10 (1-0-0)
  5. CALCIFEDIOL [Concomitant]
     Active Substance: CALCIFEDIOL
     Dosage: 10 DROPS EVERY 24 HOUR
  6. CALCIUM CARBONATE\CHOLECALCIFEROL [Concomitant]
     Active Substance: CALCIUM CARBONATE\CHOLECALCIFEROL
     Dosage: 125/4000 IU (0-0-2)
  7. FERBISOL [Concomitant]
     Dosage: 100 MG (1-0-0)
  8. RESINCHOLESTYRAMINE [Concomitant]
     Dosage: 4G (1-0-0)
  9. FUROSEMIDE [Concomitant]
     Active Substance: FUROSEMIDE
     Dosage: 40 MG 1 TABLET EVERY 24 HOURS WITH A FLEXIBLE SCHEDULE
  10. FOSTER [Concomitant]
     Active Substance: BECLOMETHASONE\FORMOTEROL
     Dosage: INHALER (2-0-2)
  11. ATROVENT [Concomitant]
     Active Substance: IPRATROPIUM BROMIDE
     Dosage: INHALER; 2 INHALATION EVERY/6 HOURS SP
     Route: 055
  12. DIGOXIN [Concomitant]
     Active Substance: DIGOXIN
     Dosage: 0.25 MG 1/2 TABLET M-F
  13. BISOPROLOL [Concomitant]
     Active Substance: BISOPROLOL\BISOPROLOL FUMARATE
     Dosage: 5MG (1-0-1)
  14. EDOXABAN TOSYLATE [Concomitant]
     Active Substance: EDOXABAN TOSYLATE
     Dosage: 30 MG EVERY/24 HOURS
  15. PALEXIA [Concomitant]
     Active Substance: TAPENTADOL HYDROCHLORIDE
     Dosage: RETARD 25 MG (1-0-1)
  16. ACETAMINOPHEN [Concomitant]
     Active Substance: ACETAMINOPHEN
     Dosage: 1G EVERY/8 HOURS
  17. METAMIZOLE [Concomitant]
     Active Substance: METAMIZOLE
     Dosage: 575 MG EVERY 8 HRS S.P
  18. BILASTINE [Concomitant]
     Active Substance: BILASTINE
     Dosage: 20 MG (0-0-1) S.P
  19. OLOPATADINE [Concomitant]
     Active Substance: OLOPATADINE
  20. OLOPATADINE [Concomitant]
     Active Substance: OLOPATADINE

REACTIONS (4)
  - Hypocalcaemia [Recovered/Resolved]
  - Hypophosphataemia [Recovered/Resolved]
  - Hypertrophic cardiomyopathy [Unknown]
  - Primary amyloidosis [Unknown]

NARRATIVE: CASE EVENT DATE: 20240212
